FAERS Safety Report 18539229 (Version 1)
Quarter: 2020Q4

REPORT INFORMATION
  Report Type: Spontaneous
  Country: US (occurrence: US)
  Receive Date: 20201124
  Receipt Date: 20201124
  Transmission Date: 20210114
  Serious: Yes (Other)
  Sender: FDA-Public Use
  Company Number: US-ASTELLAS-2020US040934

PATIENT
  Age: 71 Year
  Sex: Female

DRUGS (2)
  1. MYRBETRIQ [Suspect]
     Active Substance: MIRABEGRON
     Route: 065
  2. MYRBETRIQ [Suspect]
     Active Substance: MIRABEGRON
     Indication: CYSTITIS INTERSTITIAL
     Route: 065

REACTIONS (7)
  - Haemorrhage [Unknown]
  - Drug ineffective for unapproved indication [Unknown]
  - Gait inability [Unknown]
  - Polyp [Unknown]
  - Pain [Unknown]
  - Sciatica [Unknown]
  - Back disorder [Unknown]
